FAERS Safety Report 9346640 (Version 2)
Quarter: 2013Q3

REPORT INFORMATION
  Report Type: Spontaneous
  Country: CR (occurrence: CR)
  Receive Date: 20130613
  Receipt Date: 20130704
  Transmission Date: 20140515
  Serious: Yes (Life-Threatening, Hospitalization, Disabling, Other)
  Sender: FDA-Public Use
  Company Number: CR-AMGEN-CRISP2013041746

PATIENT
  Age: 72 Year
  Sex: Male

DRUGS (3)
  1. PROLIA [Suspect]
     Indication: PROPHYLAXIS
     Dosage: 60 MG, BID
     Route: 058
  2. PROLIA [Suspect]
     Dosage: 60MG TWICE PER DAY
     Route: 058
  3. CALCIUM [Concomitant]
     Dosage: 60 MG, UNK

REACTIONS (4)
  - Paraesthesia [Recovered/Resolved]
  - Muscular weakness [Recovered/Resolved]
  - Hypocalcaemia [Recovered/Resolved]
  - Off label use [Unknown]
